FAERS Safety Report 6507013-4 (Version None)
Quarter: 2009Q4

REPORT INFORMATION
  Report Type: 
  Country: None (occurrence: None)
  Receive Date: 20091221
  Receipt Date: 20091208
  Transmission Date: 20100525
  Serious: Yes (Other)
  Sender: FDA-Public Use
  Company Number: US-SANOFI-AVENTIS-2009SA009174

PATIENT
  Age: 0 Day
  Sex: Female
  Weight: 3.43 kg

DRUGS (5)
  1. ENOXAPARIN SODIUM [Suspect]
     Route: 064
     Dates: start: 20090728
  2. HEPARIN [Concomitant]
     Route: 064
     Dates: start: 20090101, end: 20090101
  3. VITAMIN TAB [Concomitant]
     Route: 064
  4. ALL OTHER THERAPEUTIC PRODUCTS [Concomitant]
     Route: 064
  5. BRETHINE [Concomitant]
     Route: 064

REACTIONS (2)
  - DRUG EXPOSURE DURING PREGNANCY [None]
  - FEMUR FRACTURE [None]
